APPROVED DRUG PRODUCT: MEDROXYPROGESTERONE ACETATE
Active Ingredient: MEDROXYPROGESTERONE ACETATE
Strength: 150MG/ML
Dosage Form/Route: INJECTABLE;INJECTION
Application: A076553 | Product #001 | TE Code: AB
Applicant: HONG KONG KING FRIEND INDUSTRIAL CO LTD
Approved: Jul 28, 2004 | RLD: No | RS: No | Type: RX